FAERS Safety Report 6582425-1 (Version None)
Quarter: 2010Q1

REPORT INFORMATION
  Report Type: 
  Country: None (occurrence: None)
  Receive Date: 20100216
  Receipt Date: 20100202
  Transmission Date: 20100710
  Serious: Yes (Hospitalization, Disabling, Other)
  Sender: FDA-Public Use
  Company Number: PHEH2010US01691

PATIENT
  Sex: Male

DRUGS (4)
  1. EXJADE [Suspect]
     Indication: IRON OVERLOAD
     Dosage: 3000 MG, QD
     Route: 048
     Dates: start: 20090623, end: 20090801
  2. CYCLOSPORINE [Suspect]
     Indication: APLASTIC ANAEMIA
     Dosage: 25 MG, BID
     Route: 048
     Dates: start: 20090101
  3. ALEVE (CAPLET) [Concomitant]
     Dosage: 200 MG, PRN
     Route: 048
  4. NAPROSYN [Concomitant]
     Dosage: 250 MG, PRN
     Route: 048

REACTIONS (9)
  - CONCOMITANT DISEASE AGGRAVATED [None]
  - DEHYDRATION [None]
  - DIALYSIS [None]
  - HEPATIC STEATOSIS [None]
  - HEPATOMEGALY [None]
  - PYREXIA [None]
  - RENAL CYST [None]
  - RENAL FAILURE [None]
  - SEPSIS [None]
